FAERS Safety Report 18756670 (Version 1)
Quarter: 2021Q1

REPORT INFORMATION
  Report Type: Spontaneous
  Country: FR (occurrence: FR)
  Receive Date: 20210119
  Receipt Date: 20210119
  Transmission Date: 20210419
  Serious: Yes (Other)
  Sender: FDA-Public Use
  Company Number: FR-009507513-2101FRA006839

PATIENT
  Age: 11 Year
  Sex: Female
  Weight: 50 kg

DRUGS (4)
  1. DIPROSONE [Suspect]
     Active Substance: BETAMETHASONE DIPROPIONATE
     Indication: ECZEMA
     Dosage: 1 DOSAGE FORM, QD, (0.05 PERCENT (%))
     Route: 003
     Dates: start: 20101101, end: 20201014
  2. NERISONE [Suspect]
     Active Substance: DIFLUCORTOLONE VALERATE
     Indication: ECZEMA
     Dosage: 1 DOSAGE FORM, QD
     Route: 003
     Dates: start: 2012, end: 20201014
  3. RELVAR ELLIPTA [Suspect]
     Active Substance: FLUTICASONE FUROATE\VILANTEROL TRIFENATATE
     Indication: ASTHMA
     Dosage: 1 DOSAGE FORM, QD
     Route: 055
     Dates: start: 2019, end: 20201014
  4. SERETIDE [Suspect]
     Active Substance: FLUTICASONE PROPIONATE\SALMETEROL XINAFOATE
     Indication: ASTHMA
     Dosage: 2 DOSAGE FORM, QD
     Route: 055
     Dates: start: 2013, end: 20201014

REACTIONS (3)
  - Asthma [Not Recovered/Not Resolved]
  - Eczema [Not Recovered/Not Resolved]
  - Condition aggravated [Not Recovered/Not Resolved]

NARRATIVE: CASE EVENT DATE: 2020
